FAERS Safety Report 23095491 (Version 2)
Quarter: 2023Q4

REPORT INFORMATION
  Report Type: Spontaneous
  Country: IR (occurrence: None)
  Receive Date: 20231023
  Receipt Date: 20231106
  Transmission Date: 20240110
  Serious: Yes (Hospitalization, Other)
  Sender: FDA-Public Use
  Company Number: IR-Unichem Pharmaceuticals (USA) Inc-UCM202310-001287

PATIENT
  Age: 19 Year
  Sex: Female

DRUGS (5)
  1. BACLOFEN [Suspect]
     Active Substance: BACLOFEN
     Indication: Product used for unknown indication
     Dosage: OVERDOSE WITH 20 BACLOFEN TABLETS OF 500 MG
  2. VENLAFAXINE [Concomitant]
     Active Substance: VENLAFAXINE HYDROCHLORIDE
     Indication: Depression
  3. VENLAFAXINE [Concomitant]
     Active Substance: VENLAFAXINE HYDROCHLORIDE
     Indication: Post-traumatic stress disorder
  4. CLOMIPRAMINE [Concomitant]
     Active Substance: CLOMIPRAMINE
     Indication: Depression
  5. CLOMIPRAMINE [Concomitant]
     Active Substance: CLOMIPRAMINE
     Indication: Post-traumatic stress disorder

REACTIONS (13)
  - Pneumomediastinum [Recovered/Resolved]
  - Atelectasis [Recovered/Resolved]
  - Loss of consciousness [Recovered/Resolved]
  - Mediastinal shift [Recovered/Resolved]
  - Coma scale abnormal [Recovered/Resolved]
  - Mania [Recovered/Resolved]
  - Catatonia [Recovered/Resolved]
  - Logorrhoea [Recovered/Resolved]
  - Agitation [Recovered/Resolved]
  - Hallucination, visual [Recovered/Resolved]
  - Toxicity to various agents [Unknown]
  - Suicide attempt [Unknown]
  - Overdose [Unknown]
